FAERS Safety Report 21996091 (Version 2)
Quarter: 2023Q4

REPORT INFORMATION
  Report Type: Report from Study
  Country: EG (occurrence: EG)
  Receive Date: 20230215
  Receipt Date: 20231121
  Transmission Date: 20240110
  Serious: Yes (Other)
  Sender: FDA-Public Use
  Company Number: EG-002147023-NVSC2023EG007190

PATIENT
  Age: 57 Year
  Sex: Female

DRUGS (7)
  1. COSENTYX [Suspect]
     Active Substance: SECUKINUMAB
     Indication: Psoriasis
     Dosage: 150 MG, 2 PENS PER MONTH EVERY 6 MONTH AS A MAINTENANCE DOSE
     Route: 058
     Dates: start: 202201
  2. COSENTYX [Suspect]
     Active Substance: SECUKINUMAB
     Dosage: 300 MG, QW (2 PREFILLED PENS PER MONTH AS A LOADING DOSE THEN 2 PREFILLED PENS PER MONTH AS A MAINTE
     Route: 058
     Dates: start: 20220428, end: 20230128
  3. EUTHYROX [Concomitant]
     Active Substance: LEVOTHYROXINE SODIUM
     Indication: Hypothyroidism
     Dosage: 1 DOSAGE FORM, QD (ONCE IN THE MORNING)
     Route: 065
     Dates: start: 2014
  4. EUTHYROX [Concomitant]
     Active Substance: LEVOTHYROXINE SODIUM
     Indication: Thyroid disorder
  5. VITAMINS [Concomitant]
     Active Substance: VITAMINS
     Indication: Vitamin supplementation
     Dosage: 1 DOSAGE FORM, QD (IN MORNING)
     Route: 065
     Dates: start: 202104
  6. OMEGA 3 [Concomitant]
     Active Substance: CAPSAICIN
     Indication: Vitamin supplementation
     Dosage: 3 DOSAGE FORM, TID (900 MG)
     Route: 065
     Dates: start: 202104
  7. OMEGA 3 [Concomitant]
     Active Substance: CAPSAICIN
     Dosage: 3 DOSAGE FORM, UNKNOWN (1200 MG)
     Route: 065

REACTIONS (10)
  - Psoriasis [Not Recovered/Not Resolved]
  - Oedema peripheral [Recovered/Resolved]
  - Off label use [Unknown]
  - Product dose omission issue [Not Recovered/Not Resolved]
  - Therapeutic product effect incomplete [Not Recovered/Not Resolved]
  - Red blood cell sedimentation rate abnormal [Unknown]
  - Scratch [Recovered/Resolved]
  - Mood altered [Recovered/Resolved]
  - Erythema [Recovered/Resolved]
  - Inflammation [Recovered/Resolved]

NARRATIVE: CASE EVENT DATE: 20220101
